FAERS Safety Report 20754179 (Version 1)
Quarter: 2022Q2

REPORT INFORMATION
  Report Type: Spontaneous
  Country: US (occurrence: None)
  Receive Date: 20220426
  Receipt Date: 20220426
  Transmission Date: 20220720
  Serious: No
  Sender: FDA-Public Use
  Company Number: US-ROCHE-2890687

PATIENT
  Sex: Male

DRUGS (3)
  1. ESBRIET [Suspect]
     Active Substance: PIRFENIDONE
     Indication: Idiopathic pulmonary fibrosis
     Dosage: STRENGTH:267MG
     Route: 048
     Dates: start: 20210709
  2. ESBRIET [Suspect]
     Active Substance: PIRFENIDONE
     Dosage: STRENGTH:267MG
     Route: 048
     Dates: start: 202112
  3. CELLCEPT [Suspect]
     Active Substance: MYCOPHENOLATE MOFETIL
     Indication: Product used for unknown indication
     Route: 065

REACTIONS (6)
  - Nausea [Unknown]
  - Vomiting [Unknown]
  - Diarrhoea [Unknown]
  - Burning sensation [Unknown]
  - Constipation [Unknown]
  - Abdominal pain upper [Unknown]
